FAERS Safety Report 13297273 (Version 1)
Quarter: 2017Q1

REPORT INFORMATION
  Report Type: Spontaneous
  Country: US (occurrence: US)
  Receive Date: 20170304
  Receipt Date: 20170304
  Transmission Date: 20170428
  Serious: Yes (Disabling)
  Sender: FDA-Public Use
  Company Number: None

PATIENT
  Age: 44 Year
  Sex: Female
  Weight: 63 kg

DRUGS (1)
  1. SYNTHROID [Suspect]
     Active Substance: LEVOTHYROXINE SODIUM
     Indication: HYPOTHYROIDISM
     Dosage: ?          QUANTITY:90 TABLET(S);?
     Route: 048
     Dates: start: 20170201, end: 20170220

REACTIONS (6)
  - Hot flush [None]
  - Anxiety [None]
  - Feeling abnormal [None]
  - Dizziness [None]
  - Insomnia [None]
  - Product formulation issue [None]

NARRATIVE: CASE EVENT DATE: 20170220
